FAERS Safety Report 11458036 (Version 1)
Quarter: 2015Q3

REPORT INFORMATION
  Report Type: Spontaneous
  Country: FR (occurrence: FR)
  Receive Date: 20150904
  Receipt Date: 20150904
  Transmission Date: 20151125
  Serious: Yes (Congenital Anomaly)
  Sender: FDA-Public Use
  Company Number: FR-SA-2015SA130730

PATIENT
  Sex: Male

DRUGS (2)
  1. LOVENOX [Suspect]
     Active Substance: ENOXAPARIN SODIUM
     Indication: FOETAL EXPOSURE DURING PREGNANCY
     Route: 064
     Dates: end: 20140520
  2. LYSINE ACETYLSALICYLATE [Suspect]
     Active Substance: ASPIRIN LYSINE
     Indication: FOETAL EXPOSURE DURING PREGNANCY
     Route: 064
     Dates: end: 20140520

REACTIONS (2)
  - Foetal exposure during pregnancy [Unknown]
  - Hydronephrosis [Recovered/Resolved with Sequelae]

NARRATIVE: CASE EVENT DATE: 20140409
